FAERS Safety Report 19668435 (Version 5)
Quarter: 2022Q1

REPORT INFORMATION
  Report Type: Spontaneous
  Country: US (occurrence: US)
  Receive Date: 20210806
  Receipt Date: 20220301
  Transmission Date: 20220423
  Serious: Yes (Life-Threatening, Disabling)
  Sender: FDA-Public Use
  Company Number: US-AMERICAN REGENT INC-2021002000

PATIENT
  Sex: Female
  Weight: 83.991 kg

DRUGS (22)
  1. FERRIC CARBOXYMALTOSE [Suspect]
     Active Substance: FERRIC CARBOXYMALTOSE
     Indication: Iron deficiency anaemia
     Dosage: 750 MILLIGRAM IN 100 CC^S 0.9% NS, SINGLE
     Route: 042
     Dates: start: 20180221, end: 20180221
  2. FERRIC CARBOXYMALTOSE [Suspect]
     Active Substance: FERRIC CARBOXYMALTOSE
     Dosage: 750 MILLIGRAM IN 100 CC^S 0.9% NS, SINGLE
     Route: 042
     Dates: start: 20180228, end: 20180228
  3. FERRIC CARBOXYMALTOSE [Suspect]
     Active Substance: FERRIC CARBOXYMALTOSE
     Dosage: UNK, UNK, SINGLE
     Dates: start: 20180626, end: 20180626
  4. CLONAZEPAM [Concomitant]
     Active Substance: CLONAZEPAM
     Indication: Anxiety
     Dosage: 1 MILLIGRAM, BID
     Route: 048
     Dates: start: 20170929, end: 20180723
  5. LEXAPRO [Concomitant]
     Active Substance: ESCITALOPRAM OXALATE
     Indication: Anxiety
     Dosage: 10 MILLIGRAM, QD
     Route: 048
     Dates: start: 20171026
  6. NADOLOL [Concomitant]
     Active Substance: NADOLOL
     Indication: Palpitations
     Dosage: 40 MILLIGRAM, QD
     Route: 048
     Dates: start: 20171122, end: 20180723
  7. NEXIUM [Concomitant]
     Active Substance: ESOMEPRAZOLE MAGNESIUM
     Indication: Gastrooesophageal reflux disease
     Dosage: 40 MILLIGRAM, BID
     Route: 048
     Dates: start: 20130206, end: 20190627
  8. PERCOCET [Concomitant]
     Active Substance: ACETAMINOPHEN\OXYCODONE HYDROCHLORIDE
     Indication: Pain
     Dosage: 10MG-325MG, EVERY 6 HOURS, PRN
     Route: 048
  9. PERCOCET [Concomitant]
     Active Substance: ACETAMINOPHEN\OXYCODONE HYDROCHLORIDE
     Dosage: 5MG-325MG TABLET
     Route: 048
  10. REGLAN [Concomitant]
     Active Substance: METOCLOPRAMIDE HYDROCHLORIDE
     Indication: Barrett^s oesophagus
     Dosage: 5 MILLIGRAM, QID, 30 MINS BEFORE MEALS AND AT BEDTIME
     Route: 048
     Dates: start: 20180219, end: 20180906
  11. REGLAN [Concomitant]
     Active Substance: METOCLOPRAMIDE HYDROCHLORIDE
     Indication: Gastrooesophageal reflux disease
     Dosage: 10 MILLIGRAM
  12. TIZANIDINE [Concomitant]
     Active Substance: TIZANIDINE
     Indication: Muscle spasms
     Dosage: 2 TABLETS EVERY 8 HOURS, PRN
     Route: 048
     Dates: start: 20180131
  13. TRAZODONE [Concomitant]
     Active Substance: TRAZODONE HYDROCHLORIDE
     Indication: Insomnia
     Dosage: 50 MILLIGRAM, 1 TO 2 TABLETS AT BEDTIME
     Route: 048
     Dates: start: 20171026
  14. ZOLPIDEM [Concomitant]
     Active Substance: ZOLPIDEM TARTRATE
     Indication: Insomnia
     Dosage: 5 MILLIGRAM, QD, AT BEDTIME
     Route: 048
     Dates: start: 20161201, end: 20180723
  15. AMOXICILLIN [Concomitant]
     Active Substance: AMOXICILLIN
     Indication: Gingivitis
     Dosage: 500 MILLIGRAM EVERY 8 HOURS
     Route: 048
     Dates: start: 20180214
  16. BELSOMRA [Concomitant]
     Active Substance: SUVOREXANT
     Indication: Insomnia
     Dosage: 10 MILLIGRAM ONCE PER NIGHT WITHIN 30 MINS OF BEDTIME
     Route: 048
     Dates: start: 20180214, end: 20180723
  17. LEVOTHYROXINE [Concomitant]
     Active Substance: LEVOTHYROXINE
     Indication: Hypothyroidism
     Dosage: UNK
     Dates: start: 20180215
  18. ZOFRAN [Concomitant]
     Active Substance: ONDANSETRON HYDROCHLORIDE
     Indication: Premedication
     Dosage: 8 MILLIGRAM, SINGLE
     Route: 042
     Dates: start: 20180221, end: 20180221
  19. ZOFRAN [Concomitant]
     Active Substance: ONDANSETRON HYDROCHLORIDE
     Dosage: 8 MILLIGRAM, SINGLE
     Route: 042
     Dates: start: 20180228, end: 20180228
  20. PEPCID [Concomitant]
     Active Substance: FAMOTIDINE
     Indication: Premedication
     Dosage: 20 MILLIGRAM, SINGLE
     Route: 048
     Dates: start: 20180221, end: 20180221
  21. PEPCID [Concomitant]
     Active Substance: FAMOTIDINE
     Dosage: 20 MILLIGRAM, SINGLE
     Route: 048
     Dates: start: 20180228, end: 20180228
  22. VITAMINS NOS [Concomitant]
     Active Substance: VITAMINS
     Indication: Product used for unknown indication

REACTIONS (20)
  - Pain in extremity [Unknown]
  - Muscle spasms [Not Recovered/Not Resolved]
  - Neck pain [Not Recovered/Not Resolved]
  - Heart rate irregular [Recovered/Resolved]
  - Pain [Not Recovered/Not Resolved]
  - Myalgia [Not Recovered/Not Resolved]
  - Musculoskeletal stiffness [Not Recovered/Not Resolved]
  - Fatigue [Recovered/Resolved]
  - Hypophosphataemia [Not Recovered/Not Resolved]
  - Migraine [Not Recovered/Not Resolved]
  - Back pain [Recovered/Resolved]
  - Headache [Not Recovered/Not Resolved]
  - Arthralgia [Unknown]
  - Paraesthesia [Not Recovered/Not Resolved]
  - Dizziness [Recovered/Resolved]
  - Palpitations [Not Recovered/Not Resolved]
  - Anhedonia [Recovered/Resolved]
  - Emotional distress [Not Recovered/Not Resolved]
  - Anxiety [Recovered/Resolved]
  - Product quality issue [Unknown]

NARRATIVE: CASE EVENT DATE: 20180101
